FAERS Safety Report 14258241 (Version 1)
Quarter: 2017Q4

REPORT INFORMATION
  Report Type: Report from Study
  Country: LB (occurrence: LB)
  Receive Date: 20171207
  Receipt Date: 20171207
  Transmission Date: 20180321
  Serious: Yes (Hospitalization)
  Sender: FDA-Public Use
  Company Number: LB-ROCHE-2033518

PATIENT

DRUGS (1)
  1. RITUXIMAB. [Suspect]
     Active Substance: RITUXIMAB
     Indication: MULTIPLE SCLEROSIS
     Dosage: 1000 OR 2000MG EVERY 6-12 MONTHS
     Route: 042

REACTIONS (7)
  - Meningioma benign [Unknown]
  - Off label use [Unknown]
  - Pyoderma gangrenosum [Unknown]
  - Fistula [Unknown]
  - Intentional product use issue [Unknown]
  - Infusion related reaction [Unknown]
  - Anal abscess [Unknown]
